FAERS Safety Report 16746577 (Version 4)
Quarter: 2019Q3

REPORT INFORMATION
  Report Type: Spontaneous
  Country: FR (occurrence: FR)
  Receive Date: 20190827
  Receipt Date: 20190924
  Transmission Date: 20191005
  Serious: Yes (Other)
  Sender: FDA-Public Use
  Company Number: FR-MYLANLABS-2019M1079620

PATIENT
  Age: 53 Year
  Sex: Male
  Weight: 46 kg

DRUGS (17)
  1. INSULIN GLARGINE [Suspect]
     Active Substance: INSULIN GLARGINE
     Indication: DIABETES MELLITUS
     Dosage: 1 DOSAGE FORM
  2. RITONAVIR. [Suspect]
     Active Substance: RITONAVIR
     Indication: HIV INFECTION
     Dosage: 2 DOSAGE FORM
     Dates: start: 2012
  3. SALVACYL [Suspect]
     Active Substance: TRIPTORELIN PAMOATE
     Dosage: 11.25 MILLIGRAM, Q3MONTHS
     Route: 030
     Dates: start: 20170620
  4. RALTEGRAVIR. [Suspect]
     Active Substance: RALTEGRAVIR
     Indication: HIV INFECTION
     Dosage: 2 DOSAGE FORM
     Dates: start: 2012
  5. ETRAVIRINE [Suspect]
     Active Substance: ETRAVIRINE
     Indication: HIV INFECTION
     Dosage: 2 DOSAGE FORM
     Dates: start: 2012
  6. DARUNAVIR [Suspect]
     Active Substance: DARUNAVIR
     Dosage: 1200 MILLIGRAM, QD
     Dates: start: 2012
  7. SALVACYL [Suspect]
     Active Substance: TRIPTORELIN PAMOATE
     Indication: LIBIDO DISORDER
     Dosage: UNK UNK, Q3MONTHS 1 DOSE NOT REPORTED
     Route: 065
  8. FERROUS FUMARATE [Concomitant]
     Active Substance: FERROUS FUMARATE
     Dosage: 66 MILLIGRAM
  9. ROSUVASTATIN. [Concomitant]
     Active Substance: ROSUVASTATIN
     Indication: BLOOD CHOLESTEROL
     Dosage: 10 MILLIGRAM
  10. ACETYLSALICYLIC ACID [Concomitant]
     Active Substance: ASPIRIN
     Dosage: 75 MILLIGRAM
     Dates: start: 20161201
  11. RABEPRAZOLE [Concomitant]
     Active Substance: RABEPRAZOLE
     Dosage: 20 MILLIGRAM
  12. DARUNAVIR [Suspect]
     Active Substance: DARUNAVIR
     Indication: HIV INFECTION
     Dosage: 2 DOSAGE FORM
     Dates: start: 2012
  13. ETRAVIRINE [Suspect]
     Active Substance: ETRAVIRINE
     Dosage: 400 MILLIGRAM, QD
     Dates: start: 2012
  14. INSULIN ASPART [Suspect]
     Active Substance: INSULIN ASPART
     Indication: DIABETES MELLITUS
     Dosage: 3 DOSAGE FORM
  15. METFORMIN [Concomitant]
     Active Substance: METFORMIN HYDROCHLORIDE
     Indication: DIABETES MELLITUS
     Dosage: 2550 MILLIGRAM, QD
     Dates: start: 2004
  16. RALTEGRAVIR. [Suspect]
     Active Substance: RALTEGRAVIR
     Dosage: 800 MILLIGRAM, QD
     Dates: start: 2012
  17. RITONAVIR. [Suspect]
     Active Substance: RITONAVIR
     Dosage: 200 MILLIGRAM, QD
     Dates: start: 2012

REACTIONS (2)
  - Diabetes mellitus [Recovering/Resolving]
  - Food craving [Not Recovered/Not Resolved]

NARRATIVE: CASE EVENT DATE: 201902
